FAERS Safety Report 5482081-X (Version None)
Quarter: 2007Q4

REPORT INFORMATION
  Report Type: 
  Country: None (occurrence: None)
  Receive Date: 20071005
  Receipt Date: 20070920
  Transmission Date: 20080405
  Serious: Yes (Hospitalization)
  Sender: FDA-Public Use
  Company Number: S07-FRA-05263-01

PATIENT
  Age: 65 Year
  Sex: Female

DRUGS (3)
  1. ESCITALOPRAM [Suspect]
     Dosage: 10 MG QD PO
     Route: 048
     Dates: end: 20060101
  2. ESCITALOPRAM [Suspect]
     Dosage: 10 MG QD PO
     Route: 048
     Dates: start: 20060101
  3. BENZODIAZEPINE [Concomitant]

REACTIONS (1)
  - BRAIN NEOPLASM [None]
